FAERS Safety Report 16085710 (Version 1)
Quarter: 2019Q1

REPORT INFORMATION
  Report Type: Spontaneous
  Country: GB (occurrence: GB)
  Receive Date: 20190318
  Receipt Date: 20190318
  Transmission Date: 20190418
  Serious: Yes (Hospitalization, Other)
  Sender: FDA-Public Use
  Company Number: GB-PFIZER INC-2019110651

PATIENT
  Age: 40 Year
  Sex: Female

DRUGS (7)
  1. CLENIL MODULITE [Concomitant]
     Active Substance: BECLOMETHASONE DIPROPIONATE
     Dosage: 400 UG, 1X/DAY
     Route: 055
  2. THIAMINE. [Concomitant]
     Active Substance: THIAMINE
     Dosage: 100 MG, 1X/DAY
  3. LANSOPRAZOLE. [Concomitant]
     Active Substance: LANSOPRAZOLE
     Dosage: 60 MG, 1X/DAY
  4. COLECALCIFEROL [Concomitant]
     Active Substance: CHOLECALCIFEROL
     Dosage: 20000 IU , EVERY MONTH, FIRST OF THE MONTH
  5. SERTRALINE HCL [Suspect]
     Active Substance: SERTRALINE HYDROCHLORIDE
  6. SALBUTAMOL [Concomitant]
     Active Substance: ALBUTEROL
     Dosage: 100 UG, AS NEEDED, ONE OR TWO PUFFS FOUR TIMES A DAY
     Route: 055
  7. LIDOCAINE. [Concomitant]
     Active Substance: LIDOCAINE
     Dosage: 1 DF , APPLY FOR 12 HRS
     Dates: start: 20180702

REACTIONS (2)
  - Electrocardiogram QT prolonged [Unknown]
  - Arrhythmia [Unknown]
